FAERS Safety Report 13137390 (Version 2)
Quarter: 2017Q1

REPORT INFORMATION
  Report Type: Report from Study
  Country: FR (occurrence: FR)
  Receive Date: 20170123
  Receipt Date: 20170222
  Transmission Date: 20170428
  Serious: Yes (Hospitalization, Other)
  Sender: FDA-Public Use
  Company Number: FR-AMGEN-FRANI2017009104

PATIENT
  Age: 72 Year
  Sex: Male
  Weight: 98 kg

DRUGS (6)
  1. CARFILZOMIB [Suspect]
     Active Substance: CARFILZOMIB
     Indication: PLASMA CELL MYELOMA
     Dosage: 27 MG/M2, ON DAY ONE, TWO, EIGHT, NINE, FIFTEEN, AND SIXTEEN
     Route: 065
  2. REVLIMID [Concomitant]
     Active Substance: LENALIDOMIDE
     Dosage: UNK, DAY ONE, TWO, THREE, AND FOUR.
     Dates: end: 20161201
  3. REVLIMID [Concomitant]
     Active Substance: LENALIDOMIDE
     Dosage: 25 MG, 1 TO 21 DAYS
  4. REVLIMID [Concomitant]
     Active Substance: LENALIDOMIDE
     Dosage: 25 UNK, DAY 01 AND 04
     Dates: start: 20161130
  5. CARFILZOMIB [Suspect]
     Active Substance: CARFILZOMIB
     Dosage: 54 MG, UNK
     Route: 065
     Dates: start: 20161130, end: 20161201
  6. DEXAMETHASONE. [Concomitant]
     Active Substance: DEXAMETHASONE
     Dosage: 40 MG, DAY 1-8, 15-22

REACTIONS (2)
  - Lung disorder [Unknown]
  - Aplasia [Recovering/Resolving]

NARRATIVE: CASE EVENT DATE: 20161205
